FAERS Safety Report 11713771 (Version 14)
Quarter: 2018Q1

REPORT INFORMATION
  Report Type: Spontaneous
  Country: US (occurrence: US)
  Receive Date: 20151109
  Receipt Date: 20180315
  Transmission Date: 20180508
  Serious: Yes (Other)
  Sender: FDA-Public Use
  Company Number: PHEH2015US022963

PATIENT
  Age: 32 Year
  Sex: Female
  Weight: 87.98 kg

DRUGS (4)
  1. ONDANSETRON [Suspect]
     Active Substance: ONDANSETRON
     Indication: VOMITING IN PREGNANCY
     Dosage: 4 MG PER 2 ML, UNK
     Route: 042
     Dates: start: 20110308
  2. ONDANSETRON [Suspect]
     Active Substance: ONDANSETRON
     Indication: VOMITING IN PREGNANCY
     Dosage: 4 MG, UNK
     Route: 065
     Dates: start: 201010, end: 201103
  3. ONDANSETRON [Suspect]
     Active Substance: ONDANSETRON
     Indication: VOMITING IN PREGNANCY
     Dosage: 8 MG, UNK
     Route: 048
     Dates: start: 201009, end: 201010
  4. ZOFRAN [Suspect]
     Active Substance: ONDANSETRON HYDROCHLORIDE
     Indication: VOMITING IN PREGNANCY
     Dosage: 4 MG, QD
     Route: 048

REACTIONS (24)
  - Pre-eclampsia [Unknown]
  - Polycystic ovaries [Unknown]
  - Oedema [Unknown]
  - Maternal exposure during pregnancy [Unknown]
  - Vitreous degeneration [Unknown]
  - Anhedonia [Unknown]
  - Injury [Unknown]
  - Anaemia [Unknown]
  - Premature delivery [Unknown]
  - Astigmatism [Unknown]
  - Female genital tract fistula [Unknown]
  - Pathologic myopia [Unknown]
  - Pain [Unknown]
  - Conjunctivitis allergic [Unknown]
  - Anxiety [Unknown]
  - Product use in unapproved indication [Unknown]
  - Vitreous detachment [Unknown]
  - Depression [Unknown]
  - Migraine [Unknown]
  - Proteinuria [Unknown]
  - Breech presentation [Unknown]
  - Emotional distress [Unknown]
  - Irritable bowel syndrome [Unknown]
  - Headache [Unknown]

NARRATIVE: CASE EVENT DATE: 20110313
